FAERS Safety Report 20663167 (Version 1)
Quarter: 2022Q2

REPORT INFORMATION
  Report Type: Spontaneous
  Country: US (occurrence: None)
  Receive Date: 20220401
  Receipt Date: 20220401
  Transmission Date: 20220721
  Serious: Yes (Hospitalization)
  Sender: FDA-Public Use
  Company Number: None

PATIENT
  Sex: Female
  Weight: 72.1 kg

DRUGS (4)
  1. BEVACIZUMAB [Suspect]
     Active Substance: BEVACIZUMAB
     Dates: start: 20220308, end: 20220322
  2. FLUOROURACIL [Suspect]
     Active Substance: FLUOROURACIL
     Dates: start: 20220308, end: 20220324
  3. LEUCOVORIN CALCIUM [Suspect]
     Active Substance: LEUCOVORIN CALCIUM
     Dates: start: 20220308, end: 20220322
  4. ELOXATIN [Suspect]
     Active Substance: OXALIPLATIN
     Dates: start: 20220308

REACTIONS (9)
  - Rash [None]
  - Skin exfoliation [None]
  - Blister [None]
  - Skin exfoliation [None]
  - Rash [None]
  - Rash [None]
  - Rash [None]
  - Pain [None]
  - Burning sensation [None]

NARRATIVE: CASE EVENT DATE: 20220328
